FAERS Safety Report 7493203-3 (Version None)
Quarter: 2011Q2

REPORT INFORMATION
  Report Type: 
  Country: None (occurrence: None)
  Receive Date: 20110520
  Receipt Date: 20100923
  Transmission Date: 20111010
  Serious: Yes (Hospitalization)
  Sender: FDA-Public Use
  Company Number: GB-BAYER-201033339GPV

PATIENT
  Age: 69 Year
  Sex: Female

DRUGS (7)
  1. IMODIUM [Concomitant]
     Indication: RENAL CELL CARCINOMA
     Dates: start: 20100624
  2. ZOPICLONE [Concomitant]
     Indication: SEDATION
     Dates: start: 20100201
  3. ATENOLOL [Concomitant]
     Dates: start: 19850101
  4. AMLODIPINE [Concomitant]
     Indication: HYPERTENSION
     Dates: start: 20100301
  5. SIMVASTATIN [Concomitant]
     Indication: BLOOD CHOLESTEROL INCREASED
     Dates: start: 20080101
  6. ACETAMINOPHEN [Concomitant]
     Indication: PAIN
     Dates: start: 20100520
  7. SORAFENIB [Suspect]
     Indication: RENAL CELL CARCINOMA
     Dosage: 400 MG, BID
     Route: 048
     Dates: start: 20100506, end: 20100819

REACTIONS (2)
  - BLOOD POTASSIUM INCREASED [None]
  - VOMITING [None]
